FAERS Safety Report 8890126 (Version 1)
Quarter: 2012Q4

REPORT INFORMATION
  Report Type: Spontaneous
  Country: US (occurrence: None)
  Receive Date: 20121105
  Receipt Date: 20121105
  Transmission Date: 20130627
  Serious: Yes (Life-Threatening, Hospitalization)
  Sender: FDA-Public Use
  Company Number: None

PATIENT
  Age: 32 Year
  Sex: Female
  Weight: 58.97 kg

DRUGS (1)
  1. PHENTERMINE [Suspect]
     Indication: WEIGHT CONTROL
     Dosage: 1.75mg Once a day
     Dates: start: 20120612, end: 20120901

REACTIONS (4)
  - Suicidal ideation [None]
  - Suicide attempt [None]
  - Abnormal behaviour [None]
  - Drug withdrawal syndrome [None]
